FAERS Safety Report 9287769 (Version 1)
Quarter: 2013Q2

REPORT INFORMATION
  Report Type: Spontaneous
  Country: US (occurrence: US)
  Receive Date: 20130514
  Receipt Date: 20130514
  Transmission Date: 20140414
  Serious: Yes (Hospitalization)
  Sender: FDA-Public Use
  Company Number: US-PFIZER INC-2013147043

PATIENT
  Age: 64 Year
  Sex: Female
  Weight: 75.74 kg

DRUGS (1)
  1. CHANTIX [Suspect]
     Indication: SMOKING CESSATION THERAPY
     Dosage: UNK
     Dates: end: 20130505

REACTIONS (4)
  - Convulsion [Unknown]
  - Activities of daily living impaired [Unknown]
  - Malaise [Unknown]
  - Drug ineffective [Unknown]
